FAERS Safety Report 4650885-9 (Version None)
Quarter: 2005Q2

REPORT INFORMATION
  Report Type: 
  Country: None (occurrence: None)
  Receive Date: 20050428
  Receipt Date: 20050428
  Transmission Date: 20051028
  Serious: Yes (Other)
  Sender: FDA-Public Use
  Company Number: None

PATIENT
  Age: 47 Year
  Sex: Female
  Weight: 74.8435 kg

DRUGS (5)
  1. PHENYTOIN SODIUM EXTENDED-RELEASE CAPSULES 100 MG [Suspect]
     Indication: CONVULSION PROPHYLAXIS
     Dosage: 300 MG (3 CAPS) AT BEDTIME DAILY
  2. SINGULAIR [Concomitant]
  3. ALLEGRA [Concomitant]
  4. ESTROVEN [Concomitant]
  5. ASPIRIN [Concomitant]

REACTIONS (6)
  - ANTICONVULSANT DRUG LEVEL DECREASED [None]
  - FEELING ABNORMAL [None]
  - GRAND MAL CONVULSION [None]
  - PHARMACEUTICAL PRODUCT COMPLAINT [None]
  - THERAPEUTIC RESPONSE UNEXPECTED WITH DRUG SUBSTITUTION [None]
  - TREMOR [None]
